FAERS Safety Report 22199087 (Version 3)
Quarter: 2024Q1

REPORT INFORMATION
  Report Type: Spontaneous
  Country: DE (occurrence: DE)
  Receive Date: 20230411
  Receipt Date: 20240301
  Transmission Date: 20240410
  Serious: Yes (Other)
  Sender: FDA-Public Use
  Company Number: DE-CELLTRION INC.-2023DE006964

PATIENT

DRUGS (4)
  1. INFLIXIMAB [Suspect]
     Active Substance: INFLIXIMAB
     Indication: Colitis ulcerative
     Dosage: 2.5 [MG/KG ]/ EVERY 4 WEEKS (ADDITIONAL INFORMATION: 19. - 32. GESTATIONAL WEEK)
     Route: 048
     Dates: start: 20220523, end: 20220822
  2. PREDNISOLONE [Suspect]
     Active Substance: PREDNISOLONE
     Indication: Colitis ulcerative
     Dosage: 7.5 [MG/D ] (ADDITIONAL INFO: ; ROUTE:048 19. - 33.1. GESTATIONAL WEEK)
     Route: 048
  3. MISOPROSTOL [Concomitant]
     Active Substance: MISOPROSTOL
     Indication: Labour induction
     Dosage: (ADDITIONAL INFO: ; ROUTE:048 33.1. - 33.2. GESTATIONAL WEEK)
     Route: 048
     Dates: start: 20220830, end: 20220831
  4. FOLIC ACID [Concomitant]
     Active Substance: FOLIC ACID
     Indication: Prophylaxis of neural tube defect
     Dosage: (ADDITIONAL INFORMATION ON DRUG (FREE TEXT): 6. - 33.1. GESTATIONAL WEEK)
     Route: 048

REACTIONS (4)
  - Foetal death [Recovered/Resolved]
  - Stillbirth [Recovered/Resolved]
  - Exposure during pregnancy [Unknown]
  - Intentional product use issue [Unknown]
